FAERS Safety Report 25194790 (Version 1)
Quarter: 2025Q2

REPORT INFORMATION
  Report Type: Spontaneous
  Country: DE (occurrence: DE)
  Receive Date: 20250414
  Receipt Date: 20250414
  Transmission Date: 20250717
  Serious: Yes (Congenital Anomaly, Other)
  Sender: JOHNSON AND JOHNSON
  Company Number: DE-EMB-M202108408-1

PATIENT
  Sex: Male
  Weight: 3.23 kg

DRUGS (8)
  1. SIMPONI [Suspect]
     Active Substance: GOLIMUMAB
     Indication: Rheumatoid arthritis
     Route: 064
     Dates: start: 202105, end: 202112
  2. SIMPONI [Suspect]
     Active Substance: GOLIMUMAB
  3. SIMPONI [Suspect]
     Active Substance: GOLIMUMAB
  4. BOOSTRIX [Concomitant]
     Active Substance: TETANUS TOXOID, REDUCED DIPHTHERIA TOXOID AND ACELLULAR PERTUSSIS VACCINE, ADSORBED ANTIGENS
     Indication: Immunisation
     Route: 064
     Dates: start: 202112
  5. Comirnaty monovalent (BioNTech/Pfizer) [Concomitant]
     Indication: COVID-19 immunisation
     Route: 064
  6. Spikevax monovalent (Moderna) [Concomitant]
     Indication: COVID-19 immunisation
     Route: 064
     Dates: start: 202111
  7. Femibion [Concomitant]
     Indication: Prophylaxis of neural tube defect
     Route: 064
     Dates: start: 202105, end: 202202
  8. LEVOTHYROXINE SODIUM [Concomitant]
     Active Substance: LEVOTHYROXINE SODIUM
     Indication: Hypothyroidism
     Route: 064
     Dates: start: 202105, end: 202201

REACTIONS (1)
  - Ventricular septal defect [Unknown]
